FAERS Safety Report 7227872-X (Version None)
Quarter: 2011Q1

REPORT INFORMATION
  Report Type: 
  Country: None (occurrence: None)
  Receive Date: 20110114
  Receipt Date: 20110105
  Transmission Date: 20110831
  Serious: Yes (Hospitalization, Disabling, Other)
  Sender: FDA-Public Use
  Company Number: US-MERCK-1007USA03940

PATIENT
  Age: 68 Year
  Sex: Female
  Weight: 50 kg

DRUGS (3)
  1. FOSAMAX PLUS D [Suspect]
     Indication: OSTEOPOROSIS
     Route: 048
     Dates: start: 19950101, end: 20080818
  2. FOSAMAX [Suspect]
     Indication: OSTEOPOROSIS
     Route: 048
     Dates: start: 20001101, end: 20050901
  3. FOSAMAX [Suspect]
     Route: 048
     Dates: start: 20000401, end: 20001001

REACTIONS (69)
  - FEMUR FRACTURE [None]
  - SICK SINUS SYNDROME [None]
  - NODAL ARRHYTHMIA [None]
  - DECREASED APPETITE [None]
  - MEMORY IMPAIRMENT [None]
  - HYPERSENSITIVITY [None]
  - MUSCULOSKELETAL DISCOMFORT [None]
  - GLAUCOMA [None]
  - BLOOD PRESSURE INCREASED [None]
  - BONE PAIN [None]
  - CARDIAC ARREST [None]
  - CORONARY ARTERY DISEASE [None]
  - DEMENTIA ALZHEIMER'S TYPE [None]
  - GASTROOESOPHAGEAL REFLUX DISEASE [None]
  - PERIPHERAL ARTERIAL OCCLUSIVE DISEASE [None]
  - FATIGUE [None]
  - COUGH [None]
  - IRON DEFICIENCY [None]
  - CHOLELITHIASIS [None]
  - BRONCHITIS CHRONIC [None]
  - TRICUSPID VALVE DISEASE [None]
  - SKIN CANCER [None]
  - ADVERSE DRUG REACTION [None]
  - BLOOD ALKALINE PHOSPHATASE INCREASED [None]
  - ARTHRALGIA [None]
  - PAIN IN EXTREMITY [None]
  - PULMONARY HYPERTENSION [None]
  - CELLULITIS [None]
  - CARDIAC FAILURE CONGESTIVE [None]
  - CHOLECYSTITIS [None]
  - RIGHT VENTRICULAR FAILURE [None]
  - FALL [None]
  - NAUSEA [None]
  - LUMBAR SPINAL STENOSIS [None]
  - TRICUSPID VALVE INCOMPETENCE [None]
  - DERMAL CYST [None]
  - PRURITUS [None]
  - HEART RATE INCREASED [None]
  - PLEURAL EFFUSION [None]
  - ATRIAL FIBRILLATION [None]
  - MUSCULAR WEAKNESS [None]
  - DIZZINESS [None]
  - HYPONATRAEMIA [None]
  - POSTPERICARDIOTOMY SYNDROME [None]
  - DIARRHOEA [None]
  - WEIGHT INCREASED [None]
  - VITAMIN B12 DEFICIENCY [None]
  - ERYTHEMA [None]
  - DRY THROAT [None]
  - HYPOTHYROIDISM [None]
  - MENTAL STATUS CHANGES [None]
  - UTERINE DISORDER [None]
  - BACK PAIN [None]
  - ASTHENIA [None]
  - DILATATION VENTRICULAR [None]
  - RASH [None]
  - COR PULMONALE [None]
  - DYSPNOEA [None]
  - COAGULOPATHY [None]
  - HEART INJURY [None]
  - DIVERTICULUM INTESTINAL [None]
  - OSTEOPOROSIS [None]
  - OSTEOPENIA [None]
  - SPINAL OSTEOARTHRITIS [None]
  - UPPER RESPIRATORY TRACT INFECTION [None]
  - CARDIAC MURMUR [None]
  - RECTAL HAEMORRHAGE [None]
  - HEPATOMEGALY [None]
  - BACK DISORDER [None]
